FAERS Safety Report 25407996 (Version 1)
Quarter: 2025Q2

REPORT INFORMATION
  Report Type: Spontaneous
  Country: CN (occurrence: CN)
  Receive Date: 20250606
  Receipt Date: 20250606
  Transmission Date: 20250716
  Serious: Yes (Other)
  Sender: TAKEDA
  Company Number: CN-HUTCHMED LIMITED-HMP2025CN01329

PATIENT
  Age: 67 Year
  Sex: Female
  Weight: 55 kg

DRUGS (4)
  1. FRUQUINTINIB [Suspect]
     Active Substance: FRUQUINTINIB
     Indication: Colon cancer
  2. FRUQUINTINIB [Suspect]
     Active Substance: FRUQUINTINIB
     Dosage: 3 MILLIGRAM, QD
     Dates: start: 20250414, end: 20250428
  3. TRASTUZUMAB [Concomitant]
     Active Substance: TRASTUZUMAB
     Indication: Colon cancer
  4. PERTUZUMAB [Concomitant]
     Active Substance: PERTUZUMAB
     Indication: Colon cancer

REACTIONS (2)
  - Myelosuppression [Unknown]
  - Diarrhoea [Recovering/Resolving]

NARRATIVE: CASE EVENT DATE: 20250427
